FAERS Safety Report 8324584 (Version 2)
Quarter: 2013Q3

REPORT INFORMATION
  Report Type: Spontaneous
  Country: US (occurrence: US)
  Receive Date: 20120106
  Receipt Date: 20130827
  Transmission Date: 20140515
  Serious: Yes (Hospitalization)
  Sender: FDA-Public Use
  Company Number: US-BAYER-2012-000106

PATIENT
  Age: 38 Year
  Sex: Female
  Weight: 95.24 kg

DRUGS (3)
  1. YAZ [Suspect]
     Dosage: UNK
     Dates: start: 2007
  2. MAXALT [Concomitant]
  3. REGLAN [Concomitant]

REACTIONS (4)
  - Myocardial infarction [None]
  - Pain [None]
  - Injury [None]
  - Depression [None]
